FAERS Safety Report 9311232 (Version 3)
Quarter: 2013Q3

REPORT INFORMATION
  Report Type: Spontaneous
  Country: US (occurrence: US)
  Receive Date: 20130528
  Receipt Date: 20130726
  Transmission Date: 20140515
  Serious: Yes (Hospitalization, Other)
  Sender: FDA-Public Use
  Company Number: US-PFIZER INC-2013162252

PATIENT
  Sex: Male

DRUGS (5)
  1. LYRICA [Suspect]
     Indication: NEUROPATHY PERIPHERAL
     Dosage: 25 MG, (Q 6 HR)
     Route: 048
     Dates: start: 2009
  2. LYRICA [Suspect]
     Indication: NEURALGIA
     Dosage: 25 MG, 3X/DAY (6-8 DAY 1 TID)
  3. BACTRIM DS [Concomitant]
     Dosage: 1 DF, 1X/DAY (1, QD)
  4. VALIUM [Concomitant]
     Dosage: 5 MG, 5 TABLET BID, PRN
  5. VESICARE [Concomitant]
     Dosage: 10 MG, 1X/DAY

REACTIONS (4)
  - Overdose [Unknown]
  - Abnormal behaviour [Unknown]
  - Sepsis [Unknown]
  - Urinary tract infection [Unknown]
